FAERS Safety Report 7231629-3 (Version None)
Quarter: 2011Q1

REPORT INFORMATION
  Report Type: 
  Country: None (occurrence: None)
  Receive Date: 20110118
  Receipt Date: 20110114
  Transmission Date: 20110831
  Serious: Yes (Other)
  Sender: FDA-Public Use
  Company Number: JP-PFIZER INC-2010163050

PATIENT
  Age: 85 Year
  Sex: Female
  Weight: 40 kg

DRUGS (7)
  1. MYSLEE [Concomitant]
     Indication: INSOMNIA
     Dosage: 5 MG, DAILY
     Route: 048
     Dates: start: 20101127
  2. LASIX [Suspect]
     Indication: CARDIAC FAILURE
     Dosage: 40 MG, DAILY
     Route: 048
     Dates: start: 20100728, end: 20101129
  3. RESLIN [Concomitant]
     Indication: DEPRESSION
     Dosage: 25 MG, DAILY
     Route: 048
     Dates: start: 20101127
  4. ALDACTONE [Suspect]
     Indication: OEDEMA
     Dosage: 50 MG, DAILY
     Route: 048
     Dates: start: 20101014
  5. DEPROMEL [Suspect]
     Indication: DEPRESSION
     Dosage: 25 MG, DAILY
     Route: 048
     Dates: start: 20100903
  6. DIGOXIN [Suspect]
     Indication: ANGINA PECTORIS
     Dosage: 0.125 MG, DAILY
     Route: 048
     Dates: start: 20101028
  7. FAMOTIDINE [Suspect]
     Indication: PROPHYLAXIS AGAINST GASTROINTESTINAL ULCER
     Dosage: 20 MG, DAILY
     Dates: start: 20100903

REACTIONS (3)
  - AMNESIA [None]
  - ERYTHEMA MULTIFORME [None]
  - HYPOAESTHESIA [None]
